FAERS Safety Report 4809437-X (Version None)
Quarter: 2005Q4

REPORT INFORMATION
  Report Type: 
  Country: None (occurrence: None)
  Receive Date: 20051021
  Receipt Date: 20051014
  Transmission Date: 20060501
  Serious: Yes (Other)
  Sender: FDA-Public Use
  Company Number: 163-20785-05100199

PATIENT
  Age: 51 Year
  Sex: Female

DRUGS (1)
  1. THALOMID [Suspect]
     Indication: MALIGNANT MELANOMA
     Dosage: DAILY, ORAL
     Route: 048
     Dates: start: 20050803, end: 20051001

REACTIONS (1)
  - BLOOD HUMAN CHORIONIC GONADOTROPIN ABNORMAL [None]
